FAERS Safety Report 6763522-4 (Version None)
Quarter: 2010Q2

REPORT INFORMATION
  Report Type: 
  Country: None (occurrence: None)
  Receive Date: 20100610
  Receipt Date: 20100527
  Transmission Date: 20101027
  Serious: Yes (Other)
  Sender: FDA-Public Use
  Company Number: US-ASTRAZENECA-2006UW07891

PATIENT
  Age: 56 Year
  Sex: Female
  Weight: 87.1 kg

DRUGS (26)
  1. SEROQUEL [Suspect]
     Indication: SCHIZOPHRENIA
     Route: 048
     Dates: start: 20000808
  2. SEROQUEL [Suspect]
     Indication: BIPOLAR DISORDER
     Route: 048
     Dates: start: 20000808
  3. SEROQUEL [Suspect]
     Indication: DEPRESSION
     Route: 048
     Dates: start: 20000808
  4. SEROQUEL [Suspect]
     Dosage: 200-800 MG
     Route: 048
     Dates: start: 20020110, end: 20070222
  5. SEROQUEL [Suspect]
     Dosage: 200-800 MG
     Route: 048
     Dates: start: 20020110, end: 20070222
  6. SEROQUEL [Suspect]
     Dosage: 200-800 MG
     Route: 048
     Dates: start: 20020110, end: 20070222
  7. SEROQUEL [Suspect]
     Dosage: 200MG TO 400MG
     Route: 048
     Dates: start: 20020401, end: 20020501
  8. SEROQUEL [Suspect]
     Dosage: 200MG TO 400MG
     Route: 048
     Dates: start: 20020401, end: 20020501
  9. SEROQUEL [Suspect]
     Dosage: 200MG TO 400MG
     Route: 048
     Dates: start: 20020401, end: 20020501
  10. SEROQUEL [Suspect]
     Route: 048
     Dates: start: 20020501, end: 20040801
  11. SEROQUEL [Suspect]
     Route: 048
     Dates: start: 20020501, end: 20040801
  12. SEROQUEL [Suspect]
     Route: 048
     Dates: start: 20020501, end: 20040801
  13. SEROQUEL [Suspect]
     Route: 048
     Dates: start: 20020801, end: 20060701
  14. SEROQUEL [Suspect]
     Route: 048
     Dates: start: 20020801, end: 20060701
  15. SEROQUEL [Suspect]
     Route: 048
     Dates: start: 20020801, end: 20060701
  16. ABILIFY (ARIPIPARAZOLE) [Concomitant]
     Dates: start: 20070101
  17. DOXEPIN HCL [Concomitant]
     Dates: start: 20020101
  18. EFFEXOR [Concomitant]
     Dates: start: 20020101
  19. ZOCOR [Concomitant]
     Dates: start: 20060101
  20. NEURONTIN [Concomitant]
     Dosage: 400-1200 MG
     Route: 048
     Dates: start: 20020503
  21. BEXTRA [Concomitant]
     Dates: start: 20021111
  22. GLIPIZIDE [Concomitant]
     Dosage: 5-10 MG
     Dates: start: 20060519
  23. DILANTIN [Concomitant]
     Dates: start: 20000908
  24. CYCLOBENZAPRINE [Concomitant]
     Dates: start: 20000908
  25. PRILOSEC [Concomitant]
     Dates: start: 20000801
  26. PROZAC [Concomitant]
     Dates: start: 20000808

REACTIONS (31)
  - ACTINIC KERATOSIS [None]
  - ARTHRITIS [None]
  - ASTHMA [None]
  - BACK DISORDER [None]
  - BENIGN NEOPLASM OF SPINAL CORD [None]
  - BLOOD CHOLESTEROL INCREASED [None]
  - BLOOD TRIGLYCERIDES INCREASED [None]
  - BREAST DISORDER [None]
  - CHEST DISCOMFORT [None]
  - CHEST PAIN [None]
  - CHRONIC OBSTRUCTIVE PULMONARY DISEASE [None]
  - DYSPNOEA [None]
  - HEPATITIS [None]
  - HIP ARTHROPLASTY [None]
  - HYPERLIPIDAEMIA [None]
  - INCONTINENCE [None]
  - JOINT INJURY [None]
  - LIMB INJURY [None]
  - LIVER DISORDER [None]
  - MUSCULOSKELETAL DISORDER [None]
  - NEUROFIBROMA [None]
  - OBESITY [None]
  - PAIN IN EXTREMITY [None]
  - PAINFUL RESPIRATION [None]
  - SCIATICA [None]
  - SKIN CANCER [None]
  - SKIN LESION [None]
  - SLEEP DISORDER [None]
  - SPINAL COLUMN STENOSIS [None]
  - TYPE 2 DIABETES MELLITUS [None]
  - UTERINE DISORDER [None]
